FAERS Safety Report 9774213 (Version 1)
Quarter: 2013Q4

REPORT INFORMATION
  Report Type: Spontaneous
  Country: US (occurrence: US)
  Receive Date: 20131220
  Receipt Date: 20131220
  Transmission Date: 20140711
  Serious: Yes (Other)
  Sender: FDA-Public Use
  Company Number: US-SHIRE-ALL1-2013-08743

PATIENT
  Age: 39 Year
  Sex: Female

DRUGS (1)
  1. VYVANSE [Suspect]
     Indication: PRODUCT USED FOR UNKNOWN INDICATION
     Dosage: UNK (40 OR 50 MG), UNKNOWN
     Route: 048
     Dates: start: 2013

REACTIONS (2)
  - Heart rate decreased [Unknown]
  - Dyspnoea [Unknown]
